FAERS Safety Report 4749720-X (Version None)
Quarter: 2005Q3

REPORT INFORMATION
  Report Type: 
  Country: None (occurrence: None)
  Receive Date: 20050822
  Receipt Date: 20050524
  Transmission Date: 20060218
  Serious: Yes (Hospitalization, Other)
  Sender: FDA-Public Use
  Company Number: US-MERCK-0505USA02915

PATIENT
  Age: 80 Year
  Sex: Male
  Weight: 109 kg

DRUGS (5)
  1. VIOXX [Suspect]
     Route: 048
     Dates: start: 20020301, end: 20040701
  2. PROSCAR [Concomitant]
     Route: 065
  3. FLOMAX [Concomitant]
     Route: 065
  4. TERAZOSIN HYDROCHLORIDE [Concomitant]
     Route: 065
  5. FERROUS SULFATE [Concomitant]
     Route: 065

REACTIONS (8)
  - BACK PAIN [None]
  - CEREBROVASCULAR ACCIDENT [None]
  - DIZZINESS [None]
  - HEART RATE IRREGULAR [None]
  - MYOCARDIAL INFARCTION [None]
  - PAIN IN EXTREMITY [None]
  - PERIPHERAL VASCULAR DISORDER [None]
  - POOR PERIPHERAL CIRCULATION [None]
